FAERS Safety Report 6361479-1 (Version None)
Quarter: 2009Q3

REPORT INFORMATION
  Report Type: 
  Country: None (occurrence: None)
  Receive Date: 20090918
  Receipt Date: 20090907
  Transmission Date: 20100115
  Serious: Yes (Hospitalization)
  Sender: FDA-Public Use
  Company Number: FR-PFIZER INC-2009268286

PATIENT
  Age: 68 Year

DRUGS (3)
  1. ATARAX [Suspect]
     Dosage: UNK
  2. IMOVANE [Suspect]
     Indication: SLEEP DISORDER
     Dosage: 7.5 MG, DAILY
     Route: 048
  3. TEGRETOL [Suspect]
     Dosage: 200 MG, DAILY
     Route: 048

REACTIONS (4)
  - AMNESIA [None]
  - CONFUSIONAL STATE [None]
  - FALL [None]
  - FEMUR FRACTURE [None]
